FAERS Safety Report 9333410 (Version 1)
Quarter: 2013Q2

REPORT INFORMATION
  Report Type: Spontaneous
  Country: US (occurrence: US)
  Receive Date: 20130606
  Receipt Date: 20130606
  Transmission Date: 20140414
  Serious: No
  Sender: FDA-Public Use
  Company Number: US-GLAXOSMITHKLINE-A1005907A

PATIENT
  Age: 8 Year
  Sex: Male

DRUGS (3)
  1. LAMICTAL [Suspect]
     Indication: EPILEPSY
     Dosage: 3TAB TWICE PER DAY
     Route: 048
     Dates: start: 2008
  2. VIMPAT [Concomitant]
  3. SUPPLEMENT [Concomitant]

REACTIONS (2)
  - Drug prescribing error [Unknown]
  - Product quality issue [Unknown]
